FAERS Safety Report 7514628-3 (Version None)
Quarter: 2011Q2

REPORT INFORMATION
  Report Type: 
  Country: None (occurrence: None)
  Receive Date: 20110520
  Receipt Date: 20110516
  Transmission Date: 20111010
  Serious: Yes (Hospitalization, Other)
  Sender: FDA-Public Use
  Company Number: NSR_00228_2011

PATIENT
  Age: 20 Month
  Sex: Male

DRUGS (1)
  1. LAMOTRIGINE [Suspect]
     Indication: PRODUCT USED FOR UNKNOWN INDICATION
     Dosage: (1500 MG, [10 TABLETS])

REACTIONS (9)
  - ACCIDENTAL DRUG INTAKE BY CHILD [None]
  - TOXICITY TO VARIOUS AGENTS [None]
  - CONVULSION [None]
  - TONIC CLONIC MOVEMENTS [None]
  - INCORRECT DOSE ADMINISTERED [None]
  - ATAXIA [None]
  - VOMITING [None]
  - CRYING [None]
  - MENTAL STATUS CHANGES [None]
